FAERS Safety Report 10415775 (Version 3)
Quarter: 2015Q2

REPORT INFORMATION
  Report Type: Report from Study
  Country: US (occurrence: US)
  Receive Date: 20140828
  Receipt Date: 20150512
  Transmission Date: 20150821
  Serious: Yes (Hospitalization, Other)
  Sender: FDA-Public Use
  Company Number: US-SA-2014SA114821

PATIENT
  Age: 45 Year
  Sex: Male

DRUGS (2)
  1. AVONEX [Concomitant]
     Active Substance: INTERFERON BETA-1A
     Indication: MULTIPLE SCLEROSIS
     Dates: start: 20110101
  2. AUBAGIO [Suspect]
     Active Substance: TERIFLUNOMIDE
     Indication: MULTIPLE SCLEROSIS
     Route: 048
     Dates: start: 20130413, end: 20130701

REACTIONS (9)
  - Herpes zoster [Unknown]
  - VIIth nerve paralysis [Recovering/Resolving]
  - Patella fracture [Unknown]
  - Multiple sclerosis relapse [Unknown]
  - Amnesia [Unknown]
  - Road traffic accident [Unknown]
  - Unevaluable event [Unknown]
  - Visual impairment [Unknown]
  - Hypertension [Unknown]

NARRATIVE: CASE EVENT DATE: 201311
